FAERS Safety Report 16870233 (Version 1)
Quarter: 2019Q3

REPORT INFORMATION
  Report Type: Spontaneous
  Country: US (occurrence: US)
  Receive Date: 20190930
  Receipt Date: 20190930
  Transmission Date: 20191005
  Serious: Yes (Death, Other)
  Sender: FDA-Public Use
  Company Number: US-BAUSCH-BL-2019-055015

PATIENT
  Age: 31 Year
  Sex: Male

DRUGS (12)
  1. 5-FLUOROURACIL [Suspect]
     Active Substance: FLUOROURACIL
     Route: 065
     Dates: start: 2015
  2. OXALIPLATIN. [Suspect]
     Active Substance: OXALIPLATIN
     Indication: METASTASES TO LYMPH NODES
     Dosage: HALF THE STANDARD DOSAGE
     Route: 065
     Dates: start: 201204
  3. 5-FLUOROURACIL [Suspect]
     Active Substance: FLUOROURACIL
     Indication: METASTASES TO LIVER
     Dosage: A TOTAL OF 12 CYCLES
     Route: 065
     Dates: start: 200810, end: 2008
  4. OXALIPLATIN. [Suspect]
     Active Substance: OXALIPLATIN
     Indication: SMALL INTESTINE ADENOCARCINOMA
     Dosage: FOUR ADDITIONAL CYCLES AND DISCONTINUED DUE TO THE EVENTS
     Route: 065
     Dates: start: 200901
  5. LEUCOVORIN CALCIUM. [Suspect]
     Active Substance: LEUCOVORIN CALCIUM
     Indication: SMALL INTESTINE ADENOCARCINOMA
     Dosage: FOUR ADDITIONAL CYCLES
     Route: 065
     Dates: start: 200901
  6. LEUCOVORIN CALCIUM. [Suspect]
     Active Substance: LEUCOVORIN CALCIUM
     Indication: METASTASES TO LYMPH NODES
     Dosage: HALF THE STANDARD DOSAGE
     Route: 065
     Dates: start: 201204
  7. LEUCOVORIN CALCIUM. [Suspect]
     Active Substance: LEUCOVORIN CALCIUM
     Route: 065
     Dates: start: 2015
  8. 5-FLUOROURACIL [Suspect]
     Active Substance: FLUOROURACIL
     Indication: SMALL INTESTINE ADENOCARCINOMA
     Dosage: FOUR ADDITIONAL CYCLES OF FOLFOX AND DISCONTINUED DUE TO EVENTS
     Route: 065
     Dates: start: 200901
  9. LEUCOVORIN CALCIUM. [Suspect]
     Active Substance: LEUCOVORIN CALCIUM
     Indication: METASTASES TO LIVER
     Dosage: A TOTAL OF 12 CYCLES
     Route: 065
     Dates: start: 200810, end: 2008
  10. OXALIPLATIN. [Suspect]
     Active Substance: OXALIPLATIN
     Route: 065
     Dates: start: 2015
  11. 5-FLUOROURACIL [Suspect]
     Active Substance: FLUOROURACIL
     Indication: METASTASES TO LYMPH NODES
     Dosage: HALF THE STANDARD DOSAGE WAS GIVEN
     Route: 065
     Dates: start: 201204
  12. OXALIPLATIN. [Suspect]
     Active Substance: OXALIPLATIN
     Indication: METASTASES TO LIVER
     Dosage: TOTAL OF 12 CYCLES
     Route: 065
     Dates: start: 200810, end: 2008

REACTIONS (6)
  - Weight decreased [Unknown]
  - Toxicity to various agents [Unknown]
  - Bone marrow failure [Unknown]
  - Malnutrition [Unknown]
  - Neuropathy peripheral [Unknown]
  - Fistula [Unknown]

NARRATIVE: CASE EVENT DATE: 2008
